FAERS Safety Report 8836027 (Version 3)
Quarter: 2013Q1

REPORT INFORMATION
  Report Type: Spontaneous
  Country: US (occurrence: US)
  Receive Date: 20121011
  Receipt Date: 20130117
  Transmission Date: 20140127
  Serious: No
  Sender: FDA-Public Use
  Company Number: US-PFIZER INC-2012251952

PATIENT
  Age: 40 Year
  Sex: Female
  Weight: 52.2 kg

DRUGS (2)
  1. CHANTIX [Suspect]
     Indication: SMOKING CESSATION THERAPY
     Dosage: 1 MG, 2X/DAY
     Dates: start: 2007
  2. CLIMARA [Concomitant]
     Indication: HORMONE THERAPY
     Dosage: 0.1 MG, WEEKLY

REACTIONS (7)
  - Headache [Recovered/Resolved]
  - Pain [Recovered/Resolved]
  - Constipation [Recovered/Resolved]
  - Nausea [Recovered/Resolved]
  - Abdominal distension [Recovered/Resolved]
  - Abnormal dreams [Recovered/Resolved]
  - Rash [Unknown]
